FAERS Safety Report 9747192 (Version 1)
Quarter: 2013Q4

REPORT INFORMATION
  Report Type: Report from Study
  Country: US (occurrence: US)
  Receive Date: 20131212
  Receipt Date: 20131212
  Transmission Date: 20140711
  Serious: Yes (Death)
  Sender: FDA-Public Use
  Company Number: US-ROCHE-1293355

PATIENT
  Sex: Female
  Weight: 56.75 kg

DRUGS (9)
  1. AVASTIN [Suspect]
     Indication: MALIGNANT PERITONEAL NEOPLASM
     Dosage: SIMILAR DOSES WERE ADMINISTERED ON 04/JUL/2010, 14/AUG/2010, 09/SEP/2010, 30/SEP/2010, 02/DEC/2010,
     Route: 041
     Dates: start: 20100524
  2. CARBOPLATIN [Concomitant]
     Dosage: SIMILAR DOSES WERE ADMINISTERED ON 15/JUN/2010, 15/JUL/2010, 29/JUL/2010, 14/AUG/2010, 09/SEP/2010,
     Route: 041
     Dates: start: 20100524
  3. TAXOTERE [Concomitant]
     Dosage: SIMILAR DOSES WERE ADMINISTERED ON 15/JUN/2010, 15/JUL/2010, 29/JUL/2010, 14/AUG/2010, 09/SEP/2010,
     Route: 041
     Dates: start: 20100524
  4. DECADRON [Concomitant]
     Route: 048
     Dates: start: 20100524
  5. ALOXI [Concomitant]
     Dosage: SIMILAR DOSES WERE ADMINISTERED ON 15/JUN/2010, 15/JUL/2010, 29/JUL/2010, 14/AUG/2010, 09/SEP/2010,
     Route: 041
     Dates: start: 20100524
  6. DEXAMETHASONE [Concomitant]
     Dosage: SIMILAR DOSES WERE ADMINISTERED ON 15/JUN/2010, 15/JUL/2010, 29/JUL/2010, 14/AUG/2010, 09/SEP/2010,
     Route: 041
     Dates: start: 20100524
  7. PEPCID [Concomitant]
     Dosage: SIMILAR DOSES WERE ADMINISTERED ON 15/JUN/2010, 15/JUL/2010, 29/JUL/2010, 14/AUG/2010, 09/SEP/2010,
     Route: 041
     Dates: start: 20100524
  8. BENADRYL (UNITED STATES) [Concomitant]
     Dosage: SIMILAR DOSES WERE ADMINISTERED ON 15/JUN/2010, 15/JUL/2010, 29/JUL/2010, 14/AUG/2010, 09/SEP/2010,
     Route: 048
     Dates: start: 20100524
  9. ROCEPHIN [Concomitant]
     Dosage: SIMILAR DOSES WERE ADMINISTERED ON 11/OCT/2010, 12/OCT/2010, 13/OCT/2010,14/OCT/2010, 15/OCT/2010, 3
     Route: 065
     Dates: start: 20101011

REACTIONS (5)
  - Death [Fatal]
  - Dyspepsia [Unknown]
  - Constipation [Unknown]
  - Insomnia [Unknown]
  - Pain [Unknown]
